FAERS Safety Report 8419217-4 (Version None)
Quarter: 2012Q2

REPORT INFORMATION
  Report Type: 
  Country: None (occurrence: None)
  Receive Date: 20120530
  Receipt Date: 20120516
  Transmission Date: 20120825
  Serious: Yes (Hospitalization)
  Sender: FDA-Public Use
  Company Number: 2011100037

PATIENT
  Age: 45 Year
  Sex: Male

DRUGS (24)
  1. ALEGLITAZAR (ALEGLITAZAR) [Suspect]
     Indication: CARDIOVASCULAR EVENT PROPHYLAXIS
     Dosage: LAST DOSE PRIOR TO HYPERKALAEMIA: 04JUL2011, DOSE BLINDED, TEMPORARILY INTERRUPTED, FREQUENCY QD, OR
     Route: 048
     Dates: start: 20110215, end: 20110715
  2. ALEGLITAZAR (ALEGLITAZAR) [Suspect]
     Indication: CARDIOVASCULAR EVENT PROPHYLAXIS
     Dosage: LAST DOSE PRIOR TO HYPERKALAEMIA: 04JUL2011, DOSE BLINDED, TEMPORARILY INTERRUPTED, FREQUENCY QD, OR
     Route: 048
     Dates: start: 20110215
  3. CLOPIDOGREL BISULFATE [Concomitant]
  4. CATAPRESSAN (CLONIDINE HYDROCHLORIDE) [Concomitant]
  5. TORSEMIDE [Suspect]
     Indication: PRODUCT USED FOR UNKNOWN INDICATION
     Dosage: 10;40 G (10;20  MG, 1 IN 1;2 IN 1 D)
     Dates: start: 20110823
  6. TORSEMIDE [Suspect]
     Indication: PRODUCT USED FOR UNKNOWN INDICATION
     Dosage: 10;40 G (10;20  MG, 1 IN 1;2 IN 1 D)
     Dates: start: 20100108, end: 20110509
  7. INEGY (EZETIMIBE, SIMVASATIN) [Concomitant]
  8. ALISKIREN (ALISKIREN FUMARATE) [Concomitant]
  9. HYDROCHLOROTHIAZIDE [Concomitant]
  10. NITROLINGUAL (NITROGLYCERIN) [Concomitant]
  11. DIOVAN [Concomitant]
  12. TRAMABETA (TRAMADOL HYDROCHLORIDE) [Concomitant]
  13. SPIRONOLACTONE [Suspect]
     Indication: PRODUCT USED FOR UNKNOWN INDICATION
     Dosage: 125 MG (125 MG, 1 IN 1 D)
     Dates: start: 20110504, end: 20110506
  14. ASPIRIN [Concomitant]
  15. NEBIVOLOL HCL [Concomitant]
  16. ALLOPURINOL [Concomitant]
  17. VILODAGLIPTIN (VILDAGLIPTIN) [Concomitant]
  18. AMLODIPINE [Concomitant]
  19. METFFORMIN HYDROCHLORIDE [Concomitant]
  20. LIPROGOL (LISPRO INSULIN) [Concomitant]
  21. PANTOPRAZOLE [Concomitant]
  22. LEVEMIR [Concomitant]
  23. OMEGA-3 ACID ETHYL ESGTERS (OMEGA-3 ACID ETHYL ESTERS) [Concomitant]
  24. TARGIN (NALOXONE HYDROCHLORIDE, OXYCODONE HYDROCHLORIDE) [Concomitant]

REACTIONS (14)
  - RENAL FAILURE [None]
  - GLYCOSYLATED HAEMOGLOBIN INCREASED [None]
  - INFLUENZA [None]
  - VERTIGO [None]
  - BLOOD FIBRINOGEN INCREASED [None]
  - CAROTID ARTERY STENOSIS [None]
  - TREATMENT NONCOMPLIANCE [None]
  - HYPERGLYCAEMIA [None]
  - HYPERKALAEMIA [None]
  - FLUID INTAKE REDUCED [None]
  - HYPOTENSION [None]
  - NAUSEA [None]
  - VOMITING [None]
  - HYPERTENSIVE CRISIS [None]
